FAERS Safety Report 24571772 (Version 1)
Quarter: 2024Q4

REPORT INFORMATION
  Report Type: Spontaneous
  Country: US (occurrence: None)
  Receive Date: 20241031
  Receipt Date: 20241031
  Transmission Date: 20250115
  Serious: No
  Sender: Public
  Company Number: None

PATIENT
  Age: 79 Year
  Sex: Male
  Weight: 117.93 kg

DRUGS (1)
  1. ORENCIA [Suspect]
     Active Substance: ABATACEPT
     Indication: Osteoarthritis
     Dosage: FREQUENCY : WEEKLY;?
     Route: 058
     Dates: start: 202003

REACTIONS (2)
  - General physical health deterioration [None]
  - Product dose omission issue [None]
